FAERS Safety Report 18934135 (Version 1)
Quarter: 2021Q1

REPORT INFORMATION
  Report Type: Spontaneous
  Country: US (occurrence: US)
  Receive Date: 20210224
  Receipt Date: 20210224
  Transmission Date: 20210420
  Serious: Yes (Other)
  Sender: FDA-Public Use
  Company Number: None

PATIENT
  Age: 6 Year
  Sex: Female

DRUGS (3)
  1. ACTEMRA ACTPEN [Suspect]
     Active Substance: TOCILIZUMAB
     Indication: JUVENILE IDIOPATHIC ARTHRITIS
     Dosage: ?          OTHER FREQUENCY:ONCE SC Q 21 DAYS;?
     Route: 058
     Dates: start: 20200424
  2. HUMIRA [Concomitant]
     Active Substance: ADALIMUMAB
     Dates: start: 20200111, end: 20200406
  3. RASUVO 15MG/0.3ML INJECTION [Concomitant]
     Dates: start: 20200804

REACTIONS (3)
  - Injection site pain [None]
  - Injection site induration [None]
  - Injection site erythema [None]

NARRATIVE: CASE EVENT DATE: 20210223
